FAERS Safety Report 5326806-2 (Version None)
Quarter: 2007Q2

REPORT INFORMATION
  Report Type: 
  Country: None (occurrence: None)
  Receive Date: 20070516
  Receipt Date: 20070504
  Transmission Date: 20071010
  Serious: Yes (Other)
  Sender: FDA-Public Use
  Company Number: US-PFIZER INC-2007038186

PATIENT
  Sex: Male
  Weight: 88.5 kg

DRUGS (9)
  1. VIAGRA [Suspect]
     Indication: ERECTILE DYSFUNCTION
     Dates: start: 20000613, end: 20050616
  2. MOTRIN [Concomitant]
  3. VITAMIN CAP [Concomitant]
  4. CARISOPRODOL [Concomitant]
  5. PRAZOSIN HCL [Concomitant]
  6. LISINOPRIL [Concomitant]
  7. LOVASTATIN [Concomitant]
  8. ASPIRIN [Concomitant]
  9. SUDAFED 12 HOUR [Concomitant]

REACTIONS (2)
  - BLINDNESS UNILATERAL [None]
  - OPTIC ISCHAEMIC NEUROPATHY [None]
